FAERS Safety Report 18565147 (Version 1)
Quarter: 2020Q4

REPORT INFORMATION
  Report Type: Spontaneous
  Country: US (occurrence: US)
  Receive Date: 20201201
  Receipt Date: 20201201
  Transmission Date: 20210114
  Serious: No
  Sender: FDA-Public Use
  Company Number: US-ENDO PHARMACEUTICALS INC-2020-003138

PATIENT
  Age: 35 Year
  Sex: Male

DRUGS (4)
  1. IMIPRAMINE HYDROCHLORIDE. [Suspect]
     Active Substance: IMIPRAMINE HYDROCHLORIDE
     Indication: INCONTINENCE
     Dosage: 25 MG, BID, BROWN COLOUR
     Route: 065
     Dates: start: 20200330
  2. MYTRIC [Concomitant]
     Indication: PRODUCT USED FOR UNKNOWN INDICATION
  3. BACLOFEN. [Concomitant]
     Active Substance: BACLOFEN
     Indication: PRODUCT USED FOR UNKNOWN INDICATION
  4. OXYBUTYNIN. [Concomitant]
     Active Substance: OXYBUTYNIN CHLORIDE
     Indication: PRODUCT USED FOR UNKNOWN INDICATION

REACTIONS (4)
  - Product substitution issue [Recovered/Resolved]
  - Dysuria [Not Recovered/Not Resolved]
  - Off label use [Not Recovered/Not Resolved]
  - Drug ineffective for unapproved indication [Not Recovered/Not Resolved]

NARRATIVE: CASE EVENT DATE: 20200330
